FAERS Safety Report 4375842-1 (Version None)
Quarter: 2004Q2

REPORT INFORMATION
  Report Type: 
  Country: None (occurrence: None)
  Receive Date: 20040609
  Receipt Date: 20040609
  Transmission Date: 20050107
  Serious: Yes (Hospitalization)
  Sender: FDA-Public Use
  Company Number: None

PATIENT
  Age: 53 Year
  Sex: Male
  Weight: 83 kg

DRUGS (12)
  1. CARBOPLATIN [Suspect]
     Indication: SQUAMOUS CELL CARCINOMA
     Dosage: 654 MG IV Q 4 WKS
     Route: 042
     Dates: start: 20040504
  2. CARBOPLATIN [Suspect]
     Indication: SQUAMOUS CELL CARCINOMA
     Dosage: 654 MG IV Q 4 WKS
     Route: 042
     Dates: start: 20040601
  3. TAXOTERE [Suspect]
     Indication: SQUAMOUS CELL CARCINOMA
     Dosage: 59  MG IV Q WK
     Route: 042
     Dates: start: 20040504
  4. TAXOTERE [Suspect]
     Indication: SQUAMOUS CELL CARCINOMA
     Dosage: 59  MG IV Q WK
     Route: 042
     Dates: start: 20040511
  5. TAXOTERE [Suspect]
     Indication: SQUAMOUS CELL CARCINOMA
     Dosage: 59  MG IV Q WK
     Route: 042
     Dates: start: 20040519
  6. TAXOTERE [Suspect]
     Indication: SQUAMOUS CELL CARCINOMA
     Dosage: 59  MG IV Q WK
     Route: 042
     Dates: start: 20040601
  7. TAXOTERE [Suspect]
     Indication: SQUAMOUS CELL CARCINOMA
     Dosage: 59  MG IV Q WK
     Route: 042
     Dates: start: 20040608
  8. IFOSFAMIDE [Suspect]
     Indication: SQUAMOUS CELL CARCINOMA
     Dosage: 1,950 MG IV Q WK
     Route: 042
     Dates: start: 20040504
  9. IFOSFAMIDE [Suspect]
     Indication: SQUAMOUS CELL CARCINOMA
     Dosage: 1,950 MG IV Q WK
     Route: 042
     Dates: start: 20040511
  10. IFOSFAMIDE [Suspect]
     Indication: SQUAMOUS CELL CARCINOMA
     Dosage: 1,950 MG IV Q WK
     Route: 042
     Dates: start: 20040519
  11. IFOSFAMIDE [Suspect]
     Indication: SQUAMOUS CELL CARCINOMA
     Dosage: 1,950 MG IV Q WK
     Route: 042
     Dates: start: 20040601
  12. IFOSFAMIDE [Suspect]
     Indication: SQUAMOUS CELL CARCINOMA
     Dosage: 1,950 MG IV Q WK
     Route: 042
     Dates: start: 20040608

REACTIONS (1)
  - DEEP VEIN THROMBOSIS [None]
